FAERS Safety Report 17495330 (Version 1)
Quarter: 2020Q1

REPORT INFORMATION
  Report Type: Spontaneous
  Country: CN (occurrence: CN)
  Receive Date: 20200304
  Receipt Date: 20200304
  Transmission Date: 20200409
  Serious: Yes (Hospitalization, Other)
  Sender: FDA-Public Use
  Company Number: CN-PFIZER INC-2020091675

PATIENT
  Age: 49 Year
  Sex: Male
  Weight: 48 kg

DRUGS (11)
  1. METHOTREXATE. [Suspect]
     Active Substance: METHOTREXATE
     Dosage: 30 ML, 1X/DAY
     Route: 041
     Dates: start: 20200206, end: 20200206
  2. SODIUM CHLORIDE. [Concomitant]
     Active Substance: SODIUM CHLORIDE
     Dosage: 100 ML, 1X/DAY
     Route: 041
     Dates: start: 20200206, end: 20200206
  3. SODIUM CHLORIDE. [Concomitant]
     Active Substance: SODIUM CHLORIDE
     Dosage: 500 ML, 1X/DAY
     Route: 041
     Dates: start: 20200206, end: 20200206
  4. SODIUM CHLORIDE. [Concomitant]
     Active Substance: SODIUM CHLORIDE
     Indication: VEHICLE SOLUTION USE
     Dosage: 100 ML, 1X/DAY
     Route: 037
     Dates: start: 20200205, end: 20200205
  5. METHOTREXATE. [Suspect]
     Active Substance: METHOTREXATE
     Dosage: 10 ML, 1X/DAY
     Route: 041
     Dates: start: 20200207, end: 20200207
  6. METHOTREXATE. [Suspect]
     Active Substance: METHOTREXATE
     Indication: NON-HODGKIN^S LYMPHOMA
     Dosage: 5 ML, 1X/DAY
     Route: 037
     Dates: start: 20200205, end: 20200205
  7. DEXAMETHASONE SODIUM PHOSPHATE. [Concomitant]
     Active Substance: DEXAMETHASONE SODIUM PHOSPHATE
     Indication: NON-HODGKIN^S LYMPHOMA
     Dosage: 5 MG, 1X/DAY
     Route: 037
     Dates: start: 20200205, end: 20200205
  8. SODIUM CHLORIDE. [Concomitant]
     Active Substance: SODIUM CHLORIDE
     Dosage: 4 ML, 1X/DAY
     Route: 037
     Dates: start: 20200205, end: 20200205
  9. METHOTREXATE. [Suspect]
     Active Substance: METHOTREXATE
     Dosage: 14 ML, 1X/DAY
     Route: 041
     Dates: start: 20200206, end: 20200206
  10. CYTARABINE HYDROCHLORIDE [Suspect]
     Active Substance: CYTARABINE HYDROCHLORIDE
     Indication: NON-HODGKIN^S LYMPHOMA
     Dosage: 0.1 G, 1X/DAY
     Route: 037
     Dates: start: 20200205, end: 20200205
  11. SODIUM CHLORIDE. [Concomitant]
     Active Substance: SODIUM CHLORIDE
     Dosage: 250 ML, 1X/DAY
     Route: 041
     Dates: start: 20200207, end: 20200207

REACTIONS (7)
  - Oral mucosal erythema [Recovering/Resolving]
  - Folliculitis [Recovering/Resolving]
  - Cytopenia [Recovering/Resolving]
  - Abdominal distension [Recovering/Resolving]
  - Chest discomfort [Recovering/Resolving]
  - Asthenia [Recovering/Resolving]
  - Transaminases increased [Recovering/Resolving]

NARRATIVE: CASE EVENT DATE: 20200206
